FAERS Safety Report 22981389 (Version 2)
Quarter: 2024Q3

REPORT INFORMATION
  Report Type: Spontaneous
  Country: JP (occurrence: JP)
  Receive Date: 20230925
  Receipt Date: 20240725
  Transmission Date: 20241016
  Serious: Yes (Life-Threatening, Other)
  Sender: DAIICHI
  Company Number: JP-DSJP-DSJ-2023-139075

PATIENT
  Age: 69 Year
  Sex: Male

DRUGS (1)
  1. EDOXABAN TOSYLATE [Suspect]
     Active Substance: EDOXABAN TOSYLATE
     Indication: Pulmonary embolism
     Dosage: 60 MG DAILY
     Route: 065

REACTIONS (5)
  - Haemorrhage [Recovered/Resolved]
  - Haemorrhagic diathesis [Recovered/Resolved]
  - Hepatic function abnormal [Unknown]
  - Renal impairment [Unknown]
  - Cardiac arrest [Recovered/Resolved]
